FAERS Safety Report 21710668 (Version 1)
Quarter: 2022Q4

REPORT INFORMATION
  Report Type: Spontaneous
  Country: US (occurrence: US)
  Receive Date: 20221212
  Receipt Date: 20221212
  Transmission Date: 20230112
  Serious: No
  Sender: FDA-Public Use
  Company Number: US-GLAXOSMITHKLINE-USCH2022048643

PATIENT
  Age: 45 Year
  Sex: Female

DRUGS (3)
  1. ABREVA [Suspect]
     Active Substance: DOCOSANOL
     Indication: Herpes virus infection
     Dosage: UNK
     Dates: start: 20221113, end: 2022
  2. ABREVA [Suspect]
     Active Substance: DOCOSANOL
     Indication: Oral herpes
  3. ABREVA [Suspect]
     Active Substance: DOCOSANOL
     Indication: Lip injury

REACTIONS (2)
  - Drug ineffective for unapproved indication [Recovered/Resolved]
  - Product use in unapproved indication [Recovered/Resolved]

NARRATIVE: CASE EVENT DATE: 20220101
